FAERS Safety Report 9055181 (Version 1)
Quarter: 2013Q1

REPORT INFORMATION
  Report Type: Spontaneous
  Country: FR (occurrence: FR)
  Receive Date: 20130206
  Receipt Date: 20130206
  Transmission Date: 20140127
  Serious: Yes (Death, Hospitalization)
  Sender: FDA-Public Use
  Company Number: FR-SANOFI-AVENTIS-2013SA008252

PATIENT
  Sex: Male

DRUGS (11)
  1. CLAFORAN [Suspect]
     Indication: ANTIBIOTIC THERAPY
     Route: 065
     Dates: start: 20080927, end: 20081007
  2. OFLOCET [Suspect]
     Indication: ANTIBIOTIC THERAPY
     Route: 065
     Dates: start: 20080927, end: 20081007
  3. THIOPENTAL SODIUM [Suspect]
     Indication: PRODUCT USED FOR UNKNOWN INDICATION
     Dosage: SYRINGE
     Route: 040
     Dates: start: 20080926
  4. THIOPENTAL SODIUM [Suspect]
     Indication: PRODUCT USED FOR UNKNOWN INDICATION
     Dosage: SYRINGE
     Route: 065
     Dates: end: 20081010
  5. ERYTHROMYCIN [Suspect]
     Indication: GALLBLADDER DISORDER
     Route: 041
     Dates: start: 20081009, end: 20081012
  6. FLUDEX [Concomitant]
     Indication: HYPERTENSION
  7. MANNITOL [Concomitant]
     Dates: start: 200809
  8. VANCOMYCINE [Concomitant]
     Indication: LUNG DISORDER
     Dates: start: 20081008, end: 20081010
  9. FORTUM /UNK/ [Concomitant]
     Indication: LUNG DISORDER
     Dates: start: 20081008, end: 20081010
  10. AMIKLIN [Concomitant]
     Indication: LUNG DISORDER
     Dates: start: 20081008, end: 20081010
  11. TRIFLUCAN [Concomitant]
     Indication: LUNG DISORDER
     Dates: start: 20081008, end: 20081012

REACTIONS (4)
  - Toxic epidermal necrolysis [Fatal]
  - Dermatitis exfoliative [Unknown]
  - Eosinophilia [Unknown]
  - Skin disorder [Unknown]
